FAERS Safety Report 18964663 (Version 1)
Quarter: 2021Q1

REPORT INFORMATION
  Report Type: Spontaneous
  Country: US (occurrence: US)
  Receive Date: 20210303
  Receipt Date: 20210303
  Transmission Date: 20210420
  Serious: No
  Sender: FDA-Public Use
  Company Number: US-AMNEAL PHARMACEUTICALS-2020-AMRX-03982

PATIENT
  Sex: Male

DRUGS (3)
  1. RYTARY [Suspect]
     Active Substance: CARBIDOPA\LEVODOPA
     Dosage: 23.75/95 MG, 1 CAPSULES, 3X/DAY
     Route: 048
  2. RYTARY [Suspect]
     Active Substance: CARBIDOPA\LEVODOPA
     Dosage: 23.75/95 MG, 1 CAPSULES, 3X/DAY
     Route: 048
  3. RYTARY [Suspect]
     Active Substance: CARBIDOPA\LEVODOPA
     Indication: PRODUCT USED FOR UNKNOWN INDICATION
     Dosage: 36.25/145 MG, 1 CAPSULES, 3X/DAY
     Route: 048

REACTIONS (2)
  - Insomnia [Unknown]
  - Constipation [Unknown]
